FAERS Safety Report 23312057 (Version 2)
Quarter: 2023Q4

REPORT INFORMATION
  Report Type: Spontaneous
  Country: US (occurrence: US)
  Receive Date: 20231219
  Receipt Date: 20231220
  Transmission Date: 20240109
  Serious: No
  Sender: FDA-Public Use
  Company Number: US-002147023-NVSC2023US262778

PATIENT
  Sex: Female

DRUGS (1)
  1. PIQRAY [Suspect]
     Active Substance: ALPELISIB
     Indication: Product used for unknown indication
     Dosage: 3 DOSAGE FORM, TID
     Route: 048

REACTIONS (5)
  - Scratch [Unknown]
  - Blood glucose increased [Unknown]
  - Pruritus [Unknown]
  - Diarrhoea [Unknown]
  - Product supply issue [Unknown]
